FAERS Safety Report 6311431-7 (Version None)
Quarter: 2009Q3

REPORT INFORMATION
  Report Type: 
  Country: None (occurrence: None)
  Receive Date: 20090817
  Receipt Date: 20090805
  Transmission Date: 20100115
  Serious: Yes (Life-Threatening)
  Sender: FDA-Public Use
  Company Number: IT-PFIZER INC-2009250968

PATIENT
  Age: 69 Year

DRUGS (3)
  1. FARMORUBICINA [Suspect]
     Indication: BREAST CANCER
     Dosage: 75 MG/M2 PER DAY
     Route: 042
     Dates: start: 20090724, end: 20090724
  2. FLUOROURACIL [Concomitant]
     Dosage: 500 MG/M2, UNK
     Route: 042
     Dates: start: 20090724, end: 20090724
  3. CYCLOPHOSPHAMIDE [Concomitant]
     Dosage: 500 MG/M2, UNK
     Route: 042
     Dates: start: 20090724, end: 20090724

REACTIONS (2)
  - CHEST DISCOMFORT [None]
  - ERYTHEMA [None]
